FAERS Safety Report 5005732-2 (Version None)
Quarter: 2006Q1

REPORT INFORMATION
  Report Type: 
  Country: None (occurrence: None)
  Receive Date: 20060320
  Receipt Date: 20051214
  Transmission Date: 20060701
  Serious: Yes (Other)
  Sender: FDA-Public Use
  Company Number: 2005-12-0836

PATIENT
  Sex: Male

DRUGS (2)
  1. PEG-INTRON [Suspect]
     Dates: start: 20050201, end: 20050801
  2. REBETOL [Suspect]
     Dates: start: 20050201, end: 20050801

REACTIONS (1)
  - FACIAL PALSY [None]
